FAERS Safety Report 18490088 (Version 1)
Quarter: 2020Q4

REPORT INFORMATION
  Report Type: Other
  Country: SG (occurrence: SG)
  Receive Date: 20201111
  Receipt Date: 20201111
  Transmission Date: 20210114
  Serious: Yes (Other)
  Sender: FDA-Public Use
  Company Number: SG-ASTELLAS-2020US039451

PATIENT
  Age: 39 Year
  Sex: Male

DRUGS (7)
  1. ANTILYMPHOCYTE IMMUNOGLOBULIN (HORSE) [Suspect]
     Active Substance: EQUINE THYMOCYTE IMMUNE GLOBULIN
     Indication: PRODUCT USED FOR UNKNOWN INDICATION
     Dosage: 40 MG/KG, ONCE DAILY (4 DAYS)
     Route: 065
     Dates: start: 20200324
  2. MICAFUNGIN. [Suspect]
     Active Substance: MICAFUNGIN SODIUM
     Indication: PRODUCT USED FOR UNKNOWN INDICATION
     Dosage: UNK UNK, UNKNOWN FREQ.
     Route: 065
  3. POSACONAZOLE [Suspect]
     Active Substance: POSACONAZOLE
     Indication: PRODUCT USED FOR UNKNOWN INDICATION
     Route: 065
     Dates: start: 20200324, end: 20200329
  4. CICLOSPORIN [Suspect]
     Active Substance: CYCLOSPORINE
     Indication: PRODUCT USED FOR UNKNOWN INDICATION
     Route: 048
     Dates: start: 20200324
  5. ACICLOVIR [Suspect]
     Active Substance: ACYCLOVIR
     Indication: PRODUCT USED FOR UNKNOWN INDICATION
     Route: 065
  6. PREDNISOLONE. [Suspect]
     Active Substance: PREDNISOLONE
     Indication: PRODUCT USED FOR UNKNOWN INDICATION
     Dosage: 1 MG/KG, ONCE DAILY (10 DAYS)
     Route: 048
     Dates: start: 20200324
  7. REVOLADE [Suspect]
     Active Substance: ELTROMBOPAG
     Indication: APLASTIC ANAEMIA
     Route: 048
     Dates: start: 20200324, end: 20200330

REACTIONS (11)
  - Febrile neutropenia [Unknown]
  - Aspartate aminotransferase increased [Recovered/Resolved]
  - Proctalgia [Unknown]
  - Pyrexia [Recovered/Resolved]
  - Blood count abnormal [Unknown]
  - Blood creatinine increased [Unknown]
  - Drug-induced liver injury [Unknown]
  - Anal abscess [Unknown]
  - Alanine aminotransferase increased [Recovered/Resolved]
  - Serum sickness [Unknown]
  - Arthralgia [Recovered/Resolved]

NARRATIVE: CASE EVENT DATE: 20200326
